FAERS Safety Report 6834226-4 (Version None)
Quarter: 2010Q3

REPORT INFORMATION
  Report Type: 
  Country: None (occurrence: None)
  Receive Date: 20100712
  Receipt Date: 20070424
  Transmission Date: 20110219
  Serious: No
  Sender: FDA-Public Use
  Company Number: US-PFIZER INC-2007034734

PATIENT
  Sex: Female
  Weight: 72.727 kg

DRUGS (12)
  1. CHANTIX [Suspect]
     Indication: SMOKING CESSATION THERAPY
     Dates: start: 20070316, end: 20070413
  2. PROTONIX [Concomitant]
  3. CYMBALTA [Concomitant]
     Dosage: MORNING
  4. LEVOXYL [Concomitant]
     Dosage: MORNING
  5. BENAZEPRIL HYDROCHLORIDE [Concomitant]
     Dosage: MORNING
  6. LOVASTATIN [Concomitant]
     Dosage: BEDTIME
  7. ACETYLSALICYLIC ACID [Concomitant]
     Dosage: BEDTIME
  8. VITACAL [Concomitant]
  9. OSTEO BI-FLEX [Concomitant]
  10. ALL OTHER THERAPEUTIC PRODUCTS [Concomitant]
  11. ANTIDIARRHOEAL MICROORGANISMS [Concomitant]
  12. CENTRUM SILVER [Concomitant]

REACTIONS (7)
  - ABNORMAL DREAMS [None]
  - DECREASED APPETITE [None]
  - DEPRESSION [None]
  - FEELING ABNORMAL [None]
  - HEADACHE [None]
  - NAUSEA [None]
  - VOMITING [None]
